FAERS Safety Report 11633132 (Version 1)
Quarter: 2015Q4

REPORT INFORMATION
  Report Type: Report from Study
  Country: CA (occurrence: CA)
  Receive Date: 20151015
  Receipt Date: 20151015
  Transmission Date: 20160304
  Serious: Yes (Hospitalization)
  Sender: FDA-Public Use
  Company Number: CA-GILEAD-2015-0176197

PATIENT
  Age: 69 Year
  Sex: Female

DRUGS (3)
  1. LIPITOR [Concomitant]
     Active Substance: ATORVASTATIN CALCIUM
  2. TYLENOL [Concomitant]
     Active Substance: ACETAMINOPHEN
  3. IDELALISIB [Suspect]
     Active Substance: IDELALISIB
     Indication: NON-HODGKIN^S LYMPHOMA UNSPECIFIED HISTOLOGY INDOLENT
     Dosage: 150 MG, BID
     Route: 048
     Dates: start: 20150817, end: 20151001

REACTIONS (6)
  - Night sweats [Not Recovered/Not Resolved]
  - Haemoglobin decreased [Unknown]
  - Asthenia [Not Recovered/Not Resolved]
  - Disease progression [Not Recovered/Not Resolved]
  - General physical health deterioration [Not Recovered/Not Resolved]
  - Pyrexia [Not Recovered/Not Resolved]
